FAERS Safety Report 22200970 (Version 2)
Quarter: 2023Q2

REPORT INFORMATION
  Report Type: Spontaneous
  Country: NL (occurrence: NL)
  Receive Date: 20230412
  Receipt Date: 20230417
  Transmission Date: 20230721
  Serious: Yes (Hospitalization, Other)
  Sender: FDA-Public Use
  Company Number: NL-ROCHE-3316407

PATIENT
  Age: 80 Year
  Sex: Male
  Weight: 90.5 kg

DRUGS (29)
  1. DOXORUBICIN [Suspect]
     Active Substance: DOXORUBICIN
     Indication: Diffuse large B-cell lymphoma
     Dosage: 25 MILLIGRAM/SQ. METER
     Route: 042
     Dates: start: 20221214, end: 20230103
  2. DOXORUBICIN [Suspect]
     Active Substance: DOXORUBICIN
     Dosage: 25 MILLIGRAM/SQ. METER
     Route: 042
     Dates: start: 20230207, end: 20230228
  3. PREDNISOLONE [Suspect]
     Active Substance: PREDNISOLONE
     Indication: Diffuse large B-cell lymphoma
     Dosage: 100 MILLIGRAM, ONCE A DAY
     Route: 048
     Dates: start: 20221213, end: 20221216
  4. PREDNISOLONE [Suspect]
     Active Substance: PREDNISOLONE
     Dosage: 100 MILLIGRAM, ONCE A DAY
     Route: 048
     Dates: start: 20221219, end: 20221222
  5. PREDNISOLONE [Suspect]
     Active Substance: PREDNISOLONE
     Dosage: 100 MILLIGRAM, ONCE A DAY
     Route: 048
     Dates: start: 20221227, end: 20221230
  6. PREDNISOLONE [Suspect]
     Active Substance: PREDNISOLONE
     Dosage: 100 MILLIGRAM, ONCE A DAY
     Route: 048
     Dates: start: 20230103, end: 20230107
  7. CYCLOPHOSPHAMIDE [Suspect]
     Active Substance: CYCLOPHOSPHAMIDE
     Indication: Diffuse large B-cell lymphoma
     Dosage: 400 MILLIGRAM/SQ. METER, 3 WEEK
     Route: 042
     Dates: start: 20221213, end: 20230103
  8. CYCLOPHOSPHAMIDE [Suspect]
     Active Substance: CYCLOPHOSPHAMIDE
     Dosage: 400 MILLIGRAM/SQ. METER
     Route: 042
     Dates: start: 20230207, end: 20230228
  9. EPCORITAMAB [Suspect]
     Active Substance: EPCORITAMAB
     Indication: Diffuse large B-cell lymphoma
     Dosage: 0.16 MILLIGRAM, ONCE A DAY
     Route: 058
     Dates: start: 20221212, end: 20221212
  10. EPCORITAMAB [Suspect]
     Active Substance: EPCORITAMAB
     Dosage: 0.8 MILLIGRAM, ONCE A DAY
     Route: 058
     Dates: start: 20221219, end: 20221219
  11. EPCORITAMAB [Suspect]
     Active Substance: EPCORITAMAB
     Dosage: 48 MILLIGRAM, EVERY WEEK
     Route: 058
     Dates: start: 20221227, end: 20230117
  12. EPCORITAMAB [Suspect]
     Active Substance: EPCORITAMAB
     Dosage: 48 MILLIGRAM
     Route: 058
     Dates: start: 20230207, end: 20230228
  13. RITUXIMAB [Suspect]
     Active Substance: RITUXIMAB
     Indication: Diffuse large B-cell lymphoma
     Dosage: 375 MILLIGRAM/SQ. METER
     Route: 042
     Dates: start: 20221213, end: 20221213
  14. RITUXIMAB [Suspect]
     Active Substance: RITUXIMAB
     Indication: Diffuse large B-cell lymphoma
     Dosage: 1400 MILLIGRAM
     Route: 058
     Dates: start: 20230103, end: 20230103
  15. RITUXIMAB [Suspect]
     Active Substance: RITUXIMAB
     Dosage: 1400 MILLIGRAM
     Route: 058
     Dates: start: 20230207
  16. VINCRISTINE [Suspect]
     Active Substance: VINCRISTINE
     Indication: Diffuse large B-cell lymphoma
     Dosage: 1 MILLIGRAM/SQ. METER
     Route: 042
     Dates: start: 20221212, end: 20230103
  17. VINCRISTINE [Suspect]
     Active Substance: VINCRISTINE
     Dosage: 1 MILLIGRAM/SQ. METER
     Route: 042
     Dates: start: 20230207, end: 20230228
  18. ALLOPURINOL [Concomitant]
     Active Substance: ALLOPURINOL
     Indication: Product used for unknown indication
     Dosage: UNK
     Route: 065
     Dates: start: 20221212
  19. CLEMASTINE [Concomitant]
     Active Substance: CLEMASTINE
     Indication: Product used for unknown indication
     Dosage: UNK
     Route: 065
     Dates: start: 20221212
  20. LEVOCETIRIZINE [Concomitant]
     Active Substance: LEVOCETIRIZINE
     Indication: Product used for unknown indication
     Dosage: UNK
     Route: 065
     Dates: start: 20230103
  21. METOCLOPRAMIDE [Concomitant]
     Active Substance: METOCLOPRAMIDE
     Indication: Product used for unknown indication
     Dosage: UNK
     Route: 065
     Dates: start: 20221212
  22. MOVICOLON [Concomitant]
     Active Substance: POLYETHYLENE GLYCOL 3350\POTASSIUM CHLORIDE\SODIUM BICARBONATE\SODIUM CHLORIDE
     Indication: Product used for unknown indication
     Dosage: UNK
     Route: 065
     Dates: start: 20221213
  23. NYSTATIN [Concomitant]
     Active Substance: NYSTATIN
     Indication: Product used for unknown indication
     Dosage: UNK
     Route: 065
     Dates: start: 20221227
  24. PREDNISOLONE SODIUM SUCCINATE [Concomitant]
     Active Substance: PREDNISOLONE SODIUM SUCCINATE
     Indication: Product used for unknown indication
     Dosage: UNK
     Route: 065
     Dates: start: 20221212
  25. ACETAMINOPHEN [Concomitant]
     Active Substance: ACETAMINOPHEN
     Indication: Product used for unknown indication
     Dosage: UNK
     Route: 065
     Dates: start: 20221212
  26. Potassium phosphate dibasic;Potassium phosphate monobasic;Sodium phosp [Concomitant]
     Indication: Product used for unknown indication
     Dosage: UNK
     Route: 065
     Dates: start: 20221228
  27. PANTOPRAZOLE [Concomitant]
     Active Substance: PANTOPRAZOLE
     Indication: Product used for unknown indication
     Dosage: UNK
     Route: 065
     Dates: start: 20221219
  28. ROSUVASTATIN [Concomitant]
     Active Substance: ROSUVASTATIN
     Indication: Product used for unknown indication
     Dosage: UNK
     Route: 065
     Dates: start: 20220602
  29. SOTALOL [Concomitant]
     Active Substance: SOTALOL
     Indication: Product used for unknown indication
     Dosage: UNK
     Route: 065
     Dates: start: 20220831

REACTIONS (5)
  - Vomiting [Not Recovered/Not Resolved]
  - Procedural vomiting [Not Recovered/Not Resolved]
  - Pyloric stenosis [Recovered/Resolved]
  - Candida infection [Recovered/Resolved]
  - Device dislocation [Recovered/Resolved with Sequelae]

NARRATIVE: CASE EVENT DATE: 20230103
